FAERS Safety Report 6027489-9 (Version None)
Quarter: 2009Q1

REPORT INFORMATION
  Report Type: 
  Country: None (occurrence: None)
  Receive Date: 20090105
  Receipt Date: 20081204
  Transmission Date: 20090719
  Serious: No
  Sender: FDA-Public Use
  Company Number: US-BAYER-200814772BCC

PATIENT
  Age: 66 Year
  Sex: Male
  Weight: 82 kg

DRUGS (8)
  1. ALEVE [Suspect]
     Indication: PROCEDURAL PAIN
     Dosage: UNIT DOSE: 220 MG
     Route: 048
     Dates: start: 20081120
  2. ALEVE [Suspect]
     Dosage: UNIT DOSE: 220 MG
     Route: 048
     Dates: start: 20081120
  3. ALEVE [Suspect]
     Dosage: TOTAL DAILY DOSE: 660 MG  UNIT DOSE: 220 MG
     Route: 048
     Dates: start: 20081121, end: 20081125
  4. WELCHOL [Concomitant]
  5. FISH OIL OMEGA 3 [Concomitant]
  6. GARLIC [Concomitant]
  7. VITAMIN E [Concomitant]
  8. CENTRUM SILVER [Concomitant]

REACTIONS (1)
  - HEPATIC ENZYME INCREASED [None]
